FAERS Safety Report 25591650 (Version 1)
Quarter: 2025Q3

REPORT INFORMATION
  Report Type: Spontaneous
  Country: AU (occurrence: AU)
  Receive Date: 20250722
  Receipt Date: 20250722
  Transmission Date: 20251021
  Serious: Yes (Other)
  Sender: TEVA
  Company Number: AU-TEVA-VS-3353544

PATIENT
  Age: 36 Year
  Sex: Female

DRUGS (1)
  1. RABEPRAZOLE [Suspect]
     Active Substance: RABEPRAZOLE
     Indication: Product used for unknown indication
     Route: 065

REACTIONS (2)
  - Rectal haemorrhage [Unknown]
  - Diarrhoea [Unknown]
